FAERS Safety Report 15566665 (Version 1)
Quarter: 2018Q4

REPORT INFORMATION
  Report Type: Spontaneous
  Country: CA (occurrence: CA)
  Receive Date: 20181030
  Receipt Date: 20181030
  Transmission Date: 20190205
  Serious: Yes (Other)
  Sender: FDA-Public Use
  Company Number: CA-TEVA-2018-CA-969311

PATIENT
  Age: 17 Year
  Sex: Female

DRUGS (15)
  1. VALIUM [Concomitant]
     Active Substance: DIAZEPAM
     Indication: LAFORA^S MYOCLONIC EPILEPSY
     Dosage: 30 MILLIGRAM DAILY;
     Route: 065
  2. LEVETIRACETAM. [Concomitant]
     Active Substance: LEVETIRACETAM
     Indication: LAFORA^S MYOCLONIC EPILEPSY
     Dosage: 2000 MG
     Route: 065
  3. PHENOBARBITAL. [Suspect]
     Active Substance: PHENOBARBITAL
     Indication: LAFORA^S MYOCLONIC EPILEPSY
     Dosage: 25 MILLIGRAM DAILY;
     Route: 065
  4. PHENOBARBITAL. [Suspect]
     Active Substance: PHENOBARBITAL
     Indication: LAFORA^S MYOCLONIC EPILEPSY
     Dosage: 165 MG AT 38 YEARS OF HER AGE
     Route: 065
  5. CLONAZEPAM. [Concomitant]
     Active Substance: CLONAZEPAM
     Dosage: 7.5MG
     Route: 065
  6. CARBAMAZEPINE. [Concomitant]
     Active Substance: CARBAMAZEPINE
     Indication: LAFORA^S MYOCLONIC EPILEPSY
     Route: 065
  7. CLONAZEPAM. [Concomitant]
     Active Substance: CLONAZEPAM
     Indication: LAFORA^S MYOCLONIC EPILEPSY
     Route: 065
  8. VALPROIC ACID. [Suspect]
     Active Substance: VALPROIC ACID
     Indication: LAFORA^S MYOCLONIC EPILEPSY
     Dosage: 1500 MILLIGRAM DAILY; AT 15 YEARS OF AGE, VALPROIC ACID WAS STARTED AT LOW DOSE (INITIAL DOSE NOT ST
     Route: 065
  9. PHENOBARBITAL. [Suspect]
     Active Substance: PHENOBARBITAL
     Indication: LAFORA^S MYOCLONIC EPILEPSY
     Dosage: 100 MILLIGRAM DAILY;
     Route: 065
  10. PHENOBARBITAL. [Suspect]
     Active Substance: PHENOBARBITAL
     Indication: LAFORA^S MYOCLONIC EPILEPSY
     Dosage: 50 MILLIGRAM DAILY;
     Route: 065
  11. PRIMIDONE. [Concomitant]
     Active Substance: PRIMIDONE
     Indication: LAFORA^S MYOCLONIC EPILEPSY
     Route: 065
  12. PERAMPANEL [Concomitant]
     Active Substance: PERAMPANEL
     Indication: LAFORA^S MYOCLONIC EPILEPSY
     Dosage: 4 MILLIGRAM DAILY; AT NIGHT; STARTED AT THE AGE OF 38 YEARS
     Route: 065
  13. VALPROIC ACID. [Suspect]
     Active Substance: VALPROIC ACID
     Indication: LAFORA^S MYOCLONIC EPILEPSY
     Dosage: DOSE WAS REDUCED (EXACT DOSE NOT STATED) AFTER ADDING DIAZEPAM TO THE REGIMEN
     Route: 065
  14. N-ACETYLCYSTEINE [Concomitant]
     Active Substance: ACETYLCYSTEINE
     Dosage: 30 ML
     Route: 065
  15. ZONISAMIDE. [Concomitant]
     Active Substance: ZONISAMIDE
     Indication: LAFORA^S MYOCLONIC EPILEPSY
     Dosage: 100 MILLIGRAM DAILY;
     Route: 065

REACTIONS (4)
  - Dysarthria [Unknown]
  - Osteoporosis [Unknown]
  - Ataxia [Unknown]
  - Salivary hypersecretion [Unknown]
